FAERS Safety Report 8082623-4 (Version None)
Quarter: 2012Q1

REPORT INFORMATION
  Report Type: 
  Country: None (occurrence: None)
  Receive Date: 20120127
  Receipt Date: 20110222
  Transmission Date: 20120608
  Serious: No
  Sender: FDA-Public Use
  Company Number: US-ABBOTT-11P-163-0707293-00

PATIENT
  Sex: Female
  Weight: 63.56 kg

DRUGS (7)
  1. HUMIRA [Suspect]
     Indication: CROHN'S DISEASE
     Dates: start: 20090101, end: 20100801
  2. SULFASALAZINE [Concomitant]
     Indication: CROHN'S DISEASE
  3. ENTOCORT EC [Concomitant]
     Indication: CROHN'S DISEASE
  4. AMITRIPTYLINE HCL [Concomitant]
     Indication: DEPRESSION
  5. CITALOPRAM [Concomitant]
     Indication: DEPRESSION
  6. LORAZEPAM [Concomitant]
     Indication: ANXIETY
  7. HUMIRA [Suspect]
     Dates: start: 20101101

REACTIONS (3)
  - GAIT DISTURBANCE [None]
  - SKIN DISCOLOURATION [None]
  - OEDEMA PERIPHERAL [None]
